FAERS Safety Report 4536373-9 (Version None)
Quarter: 2004Q4

REPORT INFORMATION
  Report Type: 
  Country: None (occurrence: None)
  Receive Date: 20041223
  Receipt Date: 20040831
  Transmission Date: 20050328
  Serious: No
  Sender: FDA-Public Use
  Company Number: US-GLAXOSMITHKLINE-A0524054A

PATIENT
  Age: 79 Year
  Sex: Male

DRUGS (12)
  1. FLONASE [Suspect]
     Indication: ILL-DEFINED DISORDER
     Route: 045
     Dates: start: 20040705, end: 20040719
  2. PROSCAR [Concomitant]
  3. TERAZOSIN HCL [Concomitant]
  4. ALTACE [Concomitant]
  5. RANITIDINE [Concomitant]
  6. NEXIUM [Concomitant]
  7. ALBUTEROL [Concomitant]
  8. DIFLUCAN [Concomitant]
  9. PLAVIX [Concomitant]
  10. COREG [Concomitant]
  11. FUROSEMIDE [Concomitant]
  12. COMBIVENT [Concomitant]

REACTIONS (1)
  - HOARSENESS [None]
